FAERS Safety Report 5393819-4 (Version None)
Quarter: 2007Q3

REPORT INFORMATION
  Report Type: 
  Country: None (occurrence: None)
  Receive Date: 20070723
  Receipt Date: 20070710
  Transmission Date: 20080115
  Serious: Yes (Other)
  Sender: FDA-Public Use
  Company Number: DE-AMGEN-UK234375

PATIENT
  Sex: Male
  Weight: 85 kg

DRUGS (2)
  1. NEUPOGEN [Suspect]
     Indication: BLOOD STEM CELL HARVEST
     Route: 058
     Dates: start: 20060126, end: 20060130
  2. ACETAMINOPHEN [Concomitant]
     Route: 048

REACTIONS (2)
  - COUGH [None]
  - DYSPHONIA [None]
